FAERS Safety Report 9959850 (Version 1)
Quarter: 2014Q1

REPORT INFORMATION
  Report Type: Report from Study
  Country: US (occurrence: US)
  Receive Date: 20140305
  Receipt Date: 20140305
  Transmission Date: 20141002
  Serious: No
  Sender: FDA-Public Use
  Company Number: US-ABBVIE-13P-163-1103078-00

PATIENT
  Age: 68 Year
  Sex: Male
  Weight: 91.71 kg

DRUGS (11)
  1. HUMIRA [Suspect]
     Indication: PSORIATIC ARTHROPATHY
     Dates: start: 201205
  2. HUMIRA [Suspect]
     Indication: PSORIASIS
  3. ASPIRIN [Concomitant]
     Indication: CARDIOVASCULAR EVENT PROPHYLAXIS
  4. LISINOPRIL [Concomitant]
     Indication: HYPERTENSION
  5. SIMVASTATIN [Concomitant]
     Indication: BLOOD CHOLESTEROL INCREASED
  6. DOXYCYCLINE [Concomitant]
     Indication: PSORIASIS
  7. GLUCOSAMINE CHONDROITIN [Concomitant]
     Indication: ARTHROPATHY
  8. BETA CAROTENE [Concomitant]
     Indication: VITAMIN SUPPLEMENTATION
  9. POTASSIUM [Concomitant]
     Indication: MINERAL SUPPLEMENTATION
  10. FISH OIL [Concomitant]
     Indication: NUTRITIONAL SUPPLEMENTATION
  11. MULTIVITAMIN [Concomitant]
     Indication: VITAMIN SUPPLEMENTATION

REACTIONS (1)
  - Epistaxis [Not Recovered/Not Resolved]
